FAERS Safety Report 9011436 (Version 3)
Quarter: 2013Q1

REPORT INFORMATION
  Report Type: Report from Study
  Country: AU (occurrence: AU)
  Receive Date: 20130108
  Receipt Date: 20130116
  Transmission Date: 20140127
  Serious: Yes (Life-Threatening, Hospitalization, Other)
  Sender: FDA-Public Use
  Company Number: AU-GENZYME-CLOF-1002319

PATIENT
  Age: 56 Year
  Sex: Male
  Weight: 60 kg

DRUGS (7)
  1. EVOLTRA [Suspect]
     Indication: ACUTE MYELOID LEUKAEMIA
     Dosage: 10 MG/M2, UNK
     Route: 065
     Dates: start: 20120923
  2. EVOLTRA [Suspect]
     Dosage: UNK, CONSOLIDATION THERAPY
     Route: 042
  3. CYTARABINE [Suspect]
     Indication: ACUTE MYELOID LEUKAEMIA
     Dosage: 200 MG/M2, UNK
     Route: 042
     Dates: start: 20120923
  4. CYTARABINE [Suspect]
     Dosage: 1 G/M2, BID, CONSOLIDATION THERAPY
     Route: 042
     Dates: start: 20121213
  5. IDARUBICIN [Suspect]
     Indication: ACUTE MYELOID LEUKAEMIA
     Dosage: 12 MG/M2, UNK
     Route: 065
     Dates: start: 20120923
  6. AMSACRINE [Suspect]
     Indication: ACUTE MYELOID LEUKAEMIA
     Dosage: 140 MG/M2, UNK, CONSOLIDATION THERAPY
     Route: 042
     Dates: start: 20121213
  7. VANCOMYCIN [Concomitant]
     Indication: FEBRILE NEUTROPENIA
     Dosage: 1 G X 2
     Route: 042
     Dates: start: 20120923

REACTIONS (2)
  - Hypoxia [Unknown]
  - Bronchopulmonary aspergillosis [Unknown]
